FAERS Safety Report 8491456-6 (Version None)
Quarter: 2012Q3

REPORT INFORMATION
  Report Type: 
  Country: None (occurrence: None)
  Receive Date: 20120706
  Receipt Date: 20120702
  Transmission Date: 20120928
  Serious: Yes (Other)
  Sender: FDA-Public Use
  Company Number: FR-PFIZER INC-2012157585

PATIENT
  Age: 73 Year
  Sex: Female

DRUGS (8)
  1. FOSPHENYTOIN SODIUM [Suspect]
     Indication: CONVULSION
     Dosage: UNK
     Route: 042
     Dates: start: 20120514, end: 20120516
  2. PHENYTOIN SODIUM [Suspect]
     Indication: CONVULSION
     Dosage: FLUCTUATING FROM 200 MG TO 400 MG
     Route: 048
     Dates: start: 20120516, end: 20120605
  3. ACICLOVIR [Suspect]
     Dosage: 2 G/DAY
     Route: 042
     Dates: start: 20120530, end: 20120604
  4. STRESAM [Concomitant]
     Indication: ANXIETY
     Dosage: 50 MG, 2X/DAY
     Route: 048
  5. MICARDIS HCT [Concomitant]
     Indication: HYPERTENSION
     Route: 048
  6. ACICLOVIR [Suspect]
     Indication: MENINGOENCEPHALITIS HERPETIC
     Dosage: 3 G/DAY
     Route: 042
     Dates: start: 20120513, end: 20120530
  7. CITALOPRAM [Concomitant]
     Indication: DEPRESSION
     Dosage: 1 DF, 1X/DAY
     Route: 048
  8. FLUTICASONE PROPIONATE/SALMETEROL [Concomitant]
     Indication: ASTHMA
     Dosage: 1 DF, 2X/DAY
     Route: 055

REACTIONS (3)
  - RENAL FAILURE ACUTE [None]
  - CYTOLYTIC HEPATITIS [None]
  - CHOLESTASIS [None]
